FAERS Safety Report 4632190-X (Version None)
Quarter: 2005Q2

REPORT INFORMATION
  Report Type: 
  Country: None (occurrence: None)
  Receive Date: 20050411
  Receipt Date: 20050330
  Transmission Date: 20051028
  Serious: Yes (Hospitalization)
  Sender: FDA-Public Use
  Company Number: FR-BRISTOL-MYERS SQUIBB COMPANY-12916706

PATIENT
  Age: 76 Year
  Sex: Female

DRUGS (3)
  1. CAPTEA [Suspect]
     Dosage: DURATION: 5 YEARS 7 WEEKS
     Route: 048
     Dates: start: 20000101, end: 20050217
  2. ALDACTAZINE [Suspect]
     Dosage: DURATION: 1 WEEK 1 DAY
     Route: 048
     Dates: start: 20050210, end: 20050217
  3. OTHERS (NOS) [Concomitant]

REACTIONS (3)
  - ASTHENIA [None]
  - HYPONATRAEMIA [None]
  - INFLUENZA [None]
